FAERS Safety Report 10877653 (Version 1)
Quarter: 2015Q1

REPORT INFORMATION
  Report Type: Spontaneous
  Country: RU (occurrence: RU)
  Receive Date: 20150302
  Receipt Date: 20150302
  Transmission Date: 20150721
  Serious: Yes (Hospitalization)
  Sender: FDA-Public Use
  Company Number: RU-BAYER-2015-026140

PATIENT
  Age: 40 Year
  Sex: Female

DRUGS (1)
  1. YARINA PLUS [Suspect]
     Active Substance: DROSPIRENONE\ETHINYL ESTRADIOL\LEVOMEFOLATE CALCIUM
     Dosage: UNK
     Dates: start: 201403

REACTIONS (5)
  - Haemoptysis [None]
  - Dizziness [None]
  - Pulmonary embolism [None]
  - Pulmonary infarction [None]
  - Dyspnoea [None]

NARRATIVE: CASE EVENT DATE: 2014
